FAERS Safety Report 20913311 (Version 1)
Quarter: 2022Q2

REPORT INFORMATION
  Report Type: Report from Study
  Country: DE (occurrence: DE)
  Receive Date: 20220603
  Receipt Date: 20220603
  Transmission Date: 20220721
  Serious: Yes (Other)
  Sender: FDA-Public Use
  Company Number: DE-BIOGEN-2020BI00870054

PATIENT
  Age: 53 Year
  Sex: Female

DRUGS (8)
  1. TECFIDERA [Suspect]
     Active Substance: DIMETHYL FUMARATE
     Indication: Multiple sclerosis
     Route: 048
     Dates: start: 20200210
  2. TECFIDERA [Suspect]
     Active Substance: DIMETHYL FUMARATE
     Route: 048
     Dates: start: 20200211
  3. TECFIDERA [Suspect]
     Active Substance: DIMETHYL FUMARATE
     Route: 048
  4. CITALOPRAM [Concomitant]
     Active Substance: CITALOPRAM HYDROBROMIDE
     Indication: Depression
     Dosage: 20 MG IN THE MORNING
     Route: 065
     Dates: start: 2018
  5. MIRTAZAPINE [Concomitant]
     Active Substance: MIRTAZAPINE
     Indication: Depression
     Dosage: 30 MG IN THE EVENING
     Route: 065
     Dates: start: 2018
  6. VALSARTAN [Concomitant]
     Active Substance: VALSARTAN
     Indication: Hypertension
     Dosage: 160 MG IN THE MORNING
     Route: 065
  7. LERCANIDIPINE [Concomitant]
     Active Substance: LERCANIDIPINE
     Indication: Hypertension
     Dosage: 20 MG IN THE MORNING
     Route: 065
  8. PANTOPRAZOLE [Concomitant]
     Active Substance: PANTOPRAZOLE
     Indication: Gastrointestinal disorder prophylaxis
     Dosage: 20 MG IN THE MORNING
     Route: 065

REACTIONS (11)
  - Epilepsy [Not Recovered/Not Resolved]
  - Intentional dose omission [Unknown]
  - Motor dysfunction [Not Recovered/Not Resolved]
  - Tongue biting [Not Recovered/Not Resolved]
  - Stress [Unknown]
  - Dysarthria [Unknown]
  - Carpal tunnel syndrome [Unknown]
  - Pain in extremity [Recovered/Resolved]
  - Muscle twitching [Recovered/Resolved]
  - Chronic cheek biting [Recovered/Resolved]
  - Paraesthesia oral [Recovered/Resolved]

NARRATIVE: CASE EVENT DATE: 20200201
